FAERS Safety Report 9606135 (Version 1)
Quarter: 2013Q4

REPORT INFORMATION
  Report Type: Spontaneous
  Country: US (occurrence: US)
  Receive Date: 20131008
  Receipt Date: 20131008
  Transmission Date: 20140711
  Serious: No
  Sender: FDA-Public Use
  Company Number: US-AMGEN-USASP2013043410

PATIENT
  Sex: Male

DRUGS (2)
  1. PROLIA [Suspect]
     Indication: PROSTATE CANCER
     Dosage: UNK
     Dates: start: 201306
  2. ALKA-SELTZER                       /00002701/ [Concomitant]

REACTIONS (2)
  - Hypophosphataemia [Not Recovered/Not Resolved]
  - Blood calcium abnormal [Not Recovered/Not Resolved]
